FAERS Safety Report 24303827 (Version 2)
Quarter: 2024Q4

REPORT INFORMATION
  Report Type: Spontaneous
  Country: US (occurrence: US)
  Receive Date: 20240910
  Receipt Date: 20241107
  Transmission Date: 20250115
  Serious: No
  Sender: PFIZER
  Company Number: US-PFIZER INC-PV202400117901

PATIENT
  Age: 55 Year
  Sex: Female

DRUGS (1)
  1. XELJANZ [Suspect]
     Active Substance: TOFACITINIB CITRATE
     Dosage: UNK
     Dates: end: 202410

REACTIONS (9)
  - Joint warmth [Unknown]
  - Skin disorder [Not Recovered/Not Resolved]
  - Dry mouth [Unknown]
  - Joint swelling [Unknown]
  - Fatigue [Unknown]
  - Headache [Unknown]
  - Herpes zoster [Unknown]
  - Pruritus [Unknown]
  - Nausea [Unknown]

NARRATIVE: CASE EVENT DATE: 20241001
